FAERS Safety Report 19821681 (Version 1)
Quarter: 2021Q3

REPORT INFORMATION
  Report Type: Spontaneous
  Country: BR (occurrence: BR)
  Receive Date: 20210913
  Receipt Date: 20210913
  Transmission Date: 20211014
  Serious: Yes (Other)
  Sender: FDA-Public Use
  Company Number: BR-MYLANLABS-2021M1060694

PATIENT
  Age: 77 Year
  Sex: Female

DRUGS (4)
  1. AMOXICILLIN. [Concomitant]
     Active Substance: AMOXICILLIN
     Indication: ANTIBIOTIC THERAPY
     Dosage: 500 MILLIGRAM, THREE TIMES A DAY FOR SEVEN DAYS
     Route: 048
  2. ZOLEDRONIC ACID [Suspect]
     Active Substance: ZOLEDRONIC ACID
     Indication: OSTEOPOROSIS
     Dosage: INFUSION OF ZOLEDRONIC ACID 5MG/100ML SOLUTION EVERY TWO YEARS (TOTAL 2 DOSES)
     Route: 065
  3. RISEDRONATE [Suspect]
     Active Substance: RISEDRONATE SODIUM
     Indication: OSTEOPOROSIS
     Dosage: 150 MILLIGRAM
     Route: 048
  4. TOCOPHEROL [Concomitant]
     Active Substance: TOCOPHEROL
     Indication: OSTEONECROSIS OF JAW
     Dosage: 500 INTERNATIONAL UNIT, BID
     Route: 065

REACTIONS (5)
  - Pathological fracture [Recovered/Resolved]
  - Jaw fracture [Recovered/Resolved]
  - Dental restoration failure [Recovered/Resolved]
  - Osteonecrosis of jaw [Recovered/Resolved]
  - Bone erosion [Recovered/Resolved]
